FAERS Safety Report 6223580-2 (Version None)
Quarter: 2009Q2

REPORT INFORMATION
  Report Type: 
  Country: None (occurrence: None)
  Receive Date: 20090610
  Receipt Date: 20090525
  Transmission Date: 20091009
  Serious: Yes (Hospitalization, Other)
  Sender: FDA-Public Use
  Company Number: ACO_00552_2009

PATIENT
  Age: 24 Month
  Weight: 6 kg

DRUGS (2)
  1. TIZANIDINE HCL [Suspect]
     Indication: MUSCLE CONTRACTURE
     Dosage: 0.6 G ORAL, 0.9 G ORAL
     Route: 048
     Dates: start: 20090401
  2. VITAMINS NOS [Concomitant]

REACTIONS (7)
  - BLOOD ALKALINE PHOSPHATASE INCREASED [None]
  - CHILD NEGLECT [None]
  - GAMMA-GLUTAMYLTRANSFERASE INCREASED [None]
  - HEPATIC FUNCTION ABNORMAL [None]
  - MALNUTRITION [None]
  - RICKETS [None]
  - STARVATION [None]
